FAERS Safety Report 9789745 (Version 1)
Quarter: 2013Q4

REPORT INFORMATION
  Report Type: Spontaneous
  Country: GB (occurrence: None)
  Receive Date: 20131227
  Receipt Date: 20131227
  Transmission Date: 20140711
  Serious: Yes (Hospitalization, Other)
  Sender: FDA-Public Use
  Company Number: AUR-APL-2013-10757

PATIENT
  Age: 83 Year
  Sex: Male

DRUGS (10)
  1. TAMSULOSIN [Suspect]
     Indication: URINARY RETENTION
  2. OXYCODONE HYDROCHLORIDE [Suspect]
     Indication: PRODUCT USED FOR UNKNOWN INDICATION
     Route: 048
     Dates: start: 20130729
  3. ASPIRIN (ACETYLSALICYLIC ACID) [Concomitant]
  4. FUROSEMIDE (FUROSEMIDE) [Concomitant]
  5. LAMOTRIGINE (LAMOTRIGINE) [Concomitant]
  6. MOVICOL (IPOLYETHYL.GLYUC.W/POTAS.CHLOR./SOD.BICARB.) [Concomitant]
  7. PARACETAMOL (PARACETAMOL) [Concomitant]
  8. SALBUTAMOL (SALBUTAMOL) [Concomitant]
  9. SERETIDE (SERETIDE) [Concomitant]
  10. SIMVASTATIN (SIMVASTATIN) [Concomitant]

REACTIONS (6)
  - Orthostatic hypotension [None]
  - Abdominal pain [None]
  - Constipation [None]
  - Urinary retention [None]
  - Blood bilirubin increased [None]
  - Blood sodium decreased [None]
